FAERS Safety Report 10070584 (Version 2)
Quarter: 2014Q2

REPORT INFORMATION
  Report Type: Report from Study
  Country: TW (occurrence: TW)
  Receive Date: 20140410
  Receipt Date: 20140410
  Transmission Date: 20141212
  Serious: Yes (Hospitalization)
  Sender: FDA-Public Use
  Company Number: TW-OTSUKA-JP-2012-11270

PATIENT
  Age: 70 Year
  Sex: Male
  Weight: 64.5 kg

DRUGS (8)
  1. BLINDED ASPIRIN [Suspect]
     Indication: INTERMITTENT CLAUDICATION
     Dosage: UNK
     Dates: start: 20111123
  2. BLINDED PLACEBO [Suspect]
     Indication: INTERMITTENT CLAUDICATION
     Dosage: UNK
     Dates: start: 20111123
  3. BLINDED PLETAAL [Suspect]
     Indication: INTERMITTENT CLAUDICATION
     Dosage: UNK
     Dates: start: 20111123
  4. BOKEY [Concomitant]
     Indication: CEREBROVASCULAR ACCIDENT
     Dosage: 100 MG MILLIGRAM(S), QD
     Route: 048
     Dates: start: 20090818
  5. HADOL-5 [Concomitant]
     Indication: DELIRIUM
     Dosage: 5 MG MILLIGRAM(S), HS
     Route: 030
  6. NOVORAPID [Concomitant]
     Indication: DIABETES MELLITUS MANAGEMENT
     Dosage: UNK
     Route: 065
     Dates: start: 20110728
  7. HUMULIN N [Concomitant]
     Indication: DIABETES MELLITUS MANAGEMENT
     Dosage: UNK
     Route: 065
     Dates: start: 20110728
  8. HUMULIN R [Concomitant]
     Indication: DIABETES MELLITUS MANAGEMENT
     Dosage: UNK
     Route: 065
     Dates: start: 20110728

REACTIONS (2)
  - Pancreatitis acute [Recovered/Resolved]
  - Abdominal pain [Unknown]
